FAERS Safety Report 6661264-7 (Version None)
Quarter: 2010Q1

REPORT INFORMATION
  Report Type: 
  Country: None (occurrence: None)
  Receive Date: 20100331
  Receipt Date: 20100319
  Transmission Date: 20100710
  Serious: Yes (Other)
  Sender: FDA-Public Use
  Company Number: US-WYE-H14236010

PATIENT
  Sex: Female
  Weight: 113.5 kg

DRUGS (4)
  1. PRISTIQ [Suspect]
     Indication: BIPOLAR I DISORDER
     Dosage: UNKNOWN FROM AN UNSPECIFIED DATE TO FEB-2010; THEN WAS INCREASED TO 50 MG TWICE DAILY IN FEB-2010
     Route: 048
  2. ABILIFY [Suspect]
     Dosage: UNKNOWN
  3. MORPHINE [Suspect]
     Dosage: UNKNOWN
  4. ATIVAN [Suspect]
     Dosage: UNKNOWN

REACTIONS (7)
  - BACK DISORDER [None]
  - CONDITION AGGRAVATED [None]
  - CONFUSIONAL STATE [None]
  - DYSKINESIA [None]
  - HOT FLUSH [None]
  - HYPERTENSION [None]
  - VEIN DISORDER [None]
